FAERS Safety Report 10243054 (Version 1)
Quarter: 2014Q2

REPORT INFORMATION
  Report Type: Spontaneous
  Country: US (occurrence: US)
  Receive Date: 20140618
  Receipt Date: 20140618
  Transmission Date: 20141212
  Serious: Yes (Hospitalization)
  Sender: FDA-Public Use
  Company Number: US-SHIRE-US201403042

PATIENT
  Sex: Male

DRUGS (1)
  1. LIALDA [Suspect]
     Indication: COLITIS ULCERATIVE
     Dosage: UNK UNK, UNKNOWN (FOUR 1.2 G TABLETS PER DAY)
     Route: 048
     Dates: start: 20140329, end: 20140426

REACTIONS (1)
  - Myocarditis [Unknown]
